FAERS Safety Report 6801456-7 (Version None)
Quarter: 2010Q2

REPORT INFORMATION
  Report Type: 
  Country: None (occurrence: None)
  Receive Date: 20100629
  Receipt Date: 20100617
  Transmission Date: 20101027
  Serious: Yes (Other)
  Sender: FDA-Public Use
  Company Number: US-ROCHE-711040

PATIENT
  Sex: Female
  Weight: 60.3 kg

DRUGS (5)
  1. BONIVA [Suspect]
     Indication: OSTEOPENIA
     Route: 048
     Dates: start: 20090601
  2. CRESTOR [Concomitant]
  3. BENICAR [Concomitant]
  4. ASPIRIN [Concomitant]
     Dosage: BABY ASPIRIN
  5. CITRACAL + D [Concomitant]

REACTIONS (5)
  - ANGIOEDEMA [None]
  - BLISTER [None]
  - IMPAIRED HEALING [None]
  - THROAT TIGHTNESS [None]
  - WRONG TECHNIQUE IN DRUG USAGE PROCESS [None]
